FAERS Safety Report 7028146-2 (Version None)
Quarter: 2010Q4

REPORT INFORMATION
  Report Type: 
  Country: None (occurrence: None)
  Receive Date: 20101005
  Receipt Date: 20100930
  Transmission Date: 20110411
  Serious: Yes (Hospitalization)
  Sender: FDA-Public Use
  Company Number: US-BRISTOL-MYERS SQUIBB COMPANY-15305386

PATIENT
  Age: 76 Year
  Sex: Female

DRUGS (3)
  1. PACLITAXEL [Suspect]
     Indication: BREAST CANCER
  2. TRASTUZUMAB [Suspect]
     Indication: BREAST CANCER
  3. ATORVASTATIN [Suspect]

REACTIONS (1)
  - ACQUIRED HAEMOPHILIA [None]
